FAERS Safety Report 6050762-5 (Version None)
Quarter: 2009Q1

REPORT INFORMATION
  Report Type: 
  Country: None (occurrence: None)
  Receive Date: 20090121
  Receipt Date: 20090109
  Transmission Date: 20090719
  Serious: Yes (Other)
  Sender: FDA-Public Use
  Company Number: DSA_33077_2009

PATIENT
  Sex: Female

DRUGS (1)
  1. TAVOR               (TAVOR - LORAEPAM)          0.5MG (NOT SPECIFIED) [Suspect]
     Indication: DEPRESSION
     Dosage: 0.5 MG PRN ORAL
     Route: 048

REACTIONS (1)
  - BLOOD PRESSURE INCREASED [None]
